FAERS Safety Report 6744818-9 (Version None)
Quarter: 2010Q2

REPORT INFORMATION
  Report Type: 
  Country: None (occurrence: None)
  Receive Date: 20100527
  Receipt Date: 20100301
  Transmission Date: 20101027
  Serious: No
  Sender: FDA-Public Use
  Company Number: US-BRISTOL-MYERS SQUIBB COMPANY-14996920

PATIENT
  Age: 80 Year
  Sex: Female
  Weight: 82 kg

DRUGS (8)
  1. ONGLYZA [Suspect]
     Indication: DIABETES MELLITUS
  2. METFORMIN HYDROCHLORIDE [Suspect]
  3. MICARDIS [Concomitant]
  4. CARVEDILOL [Concomitant]
  5. SPIRONOLACTONE [Concomitant]
  6. PLAVIX [Concomitant]
  7. ASPIRIN [Concomitant]
  8. PREVACID [Concomitant]

REACTIONS (1)
  - ABDOMINAL PAIN UPPER [None]
